FAERS Safety Report 13359587 (Version 3)
Quarter: 2019Q2

REPORT INFORMATION
  Report Type: Report from Study
  Country: CA (occurrence: CA)
  Receive Date: 20170322
  Receipt Date: 20190620
  Transmission Date: 20190711
  Serious: Yes (Other)
  Sender: FDA-Public Use
  Company Number: CA-PFIZER INC-2017120361

PATIENT
  Age: 51 Year
  Sex: Male

DRUGS (1)
  1. EPINEPHRINE. [Suspect]
     Active Substance: EPINEPHRINE
     Indication: ANAPHYLACTIC REACTION
     Dosage: 300MICROG
     Route: 042

REACTIONS (4)
  - Sinus tachycardia [Recovered/Resolved]
  - Electrocardiogram ST-T segment depression [Recovered/Resolved]
  - Atrial fibrillation [Recovered/Resolved]
  - Incorrect dose administered [Recovered/Resolved]
